FAERS Safety Report 8585877-0 (Version None)
Quarter: 2012Q3

REPORT INFORMATION
  Report Type: 
  Country: None (occurrence: None)
  Receive Date: 20120810
  Receipt Date: 20120807
  Transmission Date: 20120928
  Serious: Yes (Hospitalization)
  Sender: FDA-Public Use
  Company Number: AU-BAYER-2012-077474

PATIENT
  Age: 37 Year
  Sex: Female

DRUGS (1)
  1. GADAVIST [Suspect]
     Indication: NUCLEAR MAGNETIC RESONANCE IMAGING BRAIN
     Dosage: 7.5 ML, ONCE
     Dates: start: 20120413, end: 20120413

REACTIONS (6)
  - PALPITATIONS [None]
  - HOT FLUSH [None]
  - DYSPNOEA [None]
  - SYNCOPE [None]
  - HYPOAESTHESIA [None]
  - RASH ERYTHEMATOUS [None]
